FAERS Safety Report 17975414 (Version 2)
Quarter: 2020Q3

REPORT INFORMATION
  Report Type: Report from Study
  Country: IN (occurrence: IN)
  Receive Date: 20200702
  Receipt Date: 20200727
  Transmission Date: 20201103
  Serious: Yes (Other)
  Sender: FDA-Public Use
  Company Number: NVSC2020IN183835

PATIENT
  Sex: Male

DRUGS (1)
  1. SCAPHO [Suspect]
     Active Substance: SECUKINUMAB
     Indication: PSORIATIC ARTHROPATHY
     Dosage: 150 MG, QW
     Route: 058

REACTIONS (6)
  - Skin exfoliation [Unknown]
  - Diabetes mellitus [Unknown]
  - Pruritus [Unknown]
  - Drug ineffective [Unknown]
  - Pain [Unknown]
  - Musculoskeletal stiffness [Unknown]
